FAERS Safety Report 23326144 (Version 1)
Quarter: 2023Q4

REPORT INFORMATION
  Report Type: Spontaneous
  Country: AR (occurrence: None)
  Receive Date: 20231221
  Receipt Date: 20231221
  Transmission Date: 20240110
  Serious: Yes (Disabling, Other)
  Sender: FDA-Public Use
  Company Number: 2023A285077

PATIENT
  Age: 23376 Day
  Sex: Female

DRUGS (2)
  1. FULVESTRANT [Suspect]
     Active Substance: FULVESTRANT
     Dosage: UNKNOWN
     Route: 030
  2. PALBOCICLIB [Suspect]
     Active Substance: PALBOCICLIB
     Indication: Breast cancer metastatic
     Dosage: 100 MG, CYCLIC (3X1 SCHEME)
     Dates: start: 20190430

REACTIONS (10)
  - Gait disturbance [Unknown]
  - Syncope [Unknown]
  - Temperature intolerance [Unknown]
  - Malignant neoplasm progression [Unknown]
  - Blood pressure decreased [Unknown]
  - Bone cancer [Unknown]
  - Back pain [Not Recovered/Not Resolved]
  - Crying [Not Recovered/Not Resolved]
  - Arthralgia [Not Recovered/Not Resolved]
  - Dysstasia [Not Recovered/Not Resolved]
